FAERS Safety Report 9257137 (Version 2)
Quarter: 2013Q3

REPORT INFORMATION
  Report Type: Spontaneous
  Country: US (occurrence: US)
  Receive Date: 20130426
  Receipt Date: 20130705
  Transmission Date: 20140515
  Serious: Yes (Hospitalization, Disabling, Other)
  Sender: FDA-Public Use
  Company Number: US-ASTRAZENECA-2013SE27698

PATIENT
  Age: 36 Year
  Sex: Male

DRUGS (13)
  1. NEXIUM [Suspect]
     Indication: GASTROOESOPHAGEAL REFLUX DISEASE
     Dosage: TWO TIMES A DAY
     Route: 048
     Dates: start: 1996, end: 2012
  2. NEXIUM [Suspect]
     Indication: GASTROOESOPHAGEAL REFLUX DISEASE
     Route: 048
     Dates: start: 20030926
  3. NASONEX [Concomitant]
  4. AVODART [Concomitant]
     Dates: start: 20101020, end: 20120317
  5. ASPIRIN [Concomitant]
     Dates: start: 20101020, end: 20101119
  6. POTASSIUM CHLORIDE [Concomitant]
     Dates: start: 20101020, end: 20120411
  7. PRAVASTATIN SODIUM [Concomitant]
  8. TEMAZAPAM [Concomitant]
  9. AMLODIPINE BESYLATE [Concomitant]
     Dates: start: 20110118, end: 20120130
  10. HYDROCODONE [Concomitant]
     Indication: PAIN
     Dosage: 10-650 MG
  11. ZOLPIDEM [Concomitant]
  12. FISH OIL [Concomitant]
  13. PREDNISONE [Concomitant]

REACTIONS (21)
  - Nervous system disorder [Unknown]
  - Arthropathy [Unknown]
  - Arthropathy [Unknown]
  - Atrial fibrillation [Unknown]
  - Head injury [Unknown]
  - Osteonecrosis [Unknown]
  - Osteoporosis [Unknown]
  - Blood magnesium decreased [Unknown]
  - Bone disorder [Unknown]
  - Multiple fractures [Unknown]
  - Osteoarthritis [Unknown]
  - Back disorder [Unknown]
  - Arrhythmia [Unknown]
  - Fall [Unknown]
  - Heart rate increased [Unknown]
  - Arthritis [Unknown]
  - Osteoarthritis [Unknown]
  - Memory impairment [Unknown]
  - Osteochondritis [Unknown]
  - Chondritis [Unknown]
  - Osteochondrosis [Unknown]
